FAERS Safety Report 9304810 (Version 1)
Quarter: 2013Q2

REPORT INFORMATION
  Report Type: Spontaneous
  Country: US (occurrence: None)
  Receive Date: 20130521
  Receipt Date: 20130521
  Transmission Date: 20140414
  Serious: Yes (Hospitalization)
  Sender: FDA-Public Use
  Company Number: None

PATIENT
  Age: 83 Year
  Sex: Female
  Weight: 50 kg

DRUGS (1)
  1. WARFARIN [Suspect]
     Indication: ATRIAL FIBRILLATION
     Route: 048

REACTIONS (7)
  - Unresponsive to stimuli [None]
  - Mental status changes [None]
  - Bradycardia [None]
  - Hypotension [None]
  - Liver function test abnormal [None]
  - International normalised ratio increased [None]
  - Blood glucose decreased [None]
